FAERS Safety Report 20193773 (Version 2)
Quarter: 2022Q1

REPORT INFORMATION
  Report Type: Spontaneous
  Country: US (occurrence: US)
  Receive Date: 20211216
  Receipt Date: 20220127
  Transmission Date: 20220423
  Serious: No
  Sender: FDA-Public Use
  Company Number: US-SA-SAC20211210001265

PATIENT
  Age: 51 Year
  Sex: Female
  Weight: 85.714 kg

DRUGS (1)
  1. DUPIXENT [Suspect]
     Active Substance: DUPILUMAB
     Indication: Asthma
     Dosage: 300 MG, QOW
     Route: 058
     Dates: start: 20210717

REACTIONS (5)
  - Infection [Unknown]
  - Illness [Unknown]
  - Weight abnormal [Unknown]
  - Weight fluctuation [Unknown]
  - Product use issue [Unknown]
